FAERS Safety Report 10931900 (Version 2)
Quarter: 2015Q2

REPORT INFORMATION
  Report Type: Report from Study
  Country: US (occurrence: US)
  Receive Date: 20150319
  Receipt Date: 20150429
  Transmission Date: 20150821
  Serious: Yes (Hospitalization, Other)
  Sender: FDA-Public Use
  Company Number: US-GILEAD-2015-0142546

PATIENT
  Age: 51 Year
  Sex: Male

DRUGS (1)
  1. LEDIPASVIR/SOFOSBUVIR [Suspect]
     Active Substance: LEDIPASVIR\SOFOSBUVIR
     Indication: CHRONIC HEPATITIS C
     Dosage: 1 DF, UNK
     Route: 048
     Dates: start: 201501

REACTIONS (9)
  - Acute kidney injury [Recovered/Resolved]
  - Gastrooesophageal reflux disease [Unknown]
  - Drug dependence [Unknown]
  - Back pain [Unknown]
  - Oropharyngeal pain [Unknown]
  - Dehydration [Unknown]
  - Hyponatraemia [Recovered/Resolved]
  - Cyclic vomiting syndrome [Unknown]
  - Metabolic alkalosis [Unknown]
